FAERS Safety Report 23075901 (Version 1)
Quarter: 2023Q4

REPORT INFORMATION
  Report Type: Spontaneous
  Country: ZA (occurrence: ZA)
  Receive Date: 20231017
  Receipt Date: 20231017
  Transmission Date: 20240110
  Serious: Yes (Other)
  Sender: FDA-Public Use
  Company Number: ZA-SUN PHARMACEUTICAL INDUSTRIES LTD-2023R1-413246

PATIENT
  Age: 42 Year
  Sex: Female

DRUGS (3)
  1. MESALAMINE [Suspect]
     Active Substance: MESALAMINE
     Indication: Crohn^s disease
     Dosage: 1 GRAM, DAILY
     Route: 054
  2. SULFASALAZINE [Suspect]
     Active Substance: SULFASALAZINE
     Indication: Crohn^s disease
     Dosage: 1.5 GRAM, TID
     Route: 048
  3. PREDNISONE [Concomitant]
     Active Substance: PREDNISONE
     Indication: Crohn^s disease
     Dosage: UNK (INTERMITTENT COURSES)
     Route: 048

REACTIONS (2)
  - Drug ineffective [Unknown]
  - Disease progression [Unknown]
